FAERS Safety Report 22588307 (Version 1)
Quarter: 2023Q2

REPORT INFORMATION
  Report Type: Spontaneous
  Country: DE (occurrence: DE)
  Receive Date: 20230612
  Receipt Date: 20230612
  Transmission Date: 20230722
  Serious: Yes (Life-Threatening, Hospitalization, Other)
  Sender: FDA-Public Use
  Company Number: DE-ALKEM LABORATORIES LIMITED-DE-ALKEM-2023-06179

PATIENT
  Age: 49 Year
  Sex: Female
  Weight: 100 kg

DRUGS (84)
  1. DICLOFENAC [Suspect]
     Active Substance: DICLOFENAC
     Indication: Product used for unknown indication
     Dosage: UNK
     Route: 065
  2. IBUPROFEN [Suspect]
     Active Substance: IBUPROFEN
     Indication: Product used for unknown indication
     Dosage: UNK
     Route: 065
  3. ACETAMINOPHEN [Suspect]
     Active Substance: ACETAMINOPHEN
     Indication: Product used for unknown indication
     Dosage: UNK
     Route: 065
  4. VALSARTAN [Suspect]
     Active Substance: VALSARTAN
     Indication: Hypertension
     Dosage: UNK, TABLET
     Route: 065
  5. ASPIRIN [Suspect]
     Active Substance: ASPIRIN
     Indication: Product used for unknown indication
     Dosage: UNK
     Route: 065
  6. BACLOFEN [Suspect]
     Active Substance: BACLOFEN
     Indication: Product used for unknown indication
     Dosage: 200 MICROGRAM
     Route: 058
  7. BACLOFEN [Suspect]
     Active Substance: BACLOFEN
     Dosage: UNK
     Route: 065
  8. BLEOMYCIN [Suspect]
     Active Substance: BLEOMYCIN SULFATE
     Indication: Hodgkin^s disease
     Dosage: 25 MILLIGRAM/SQ. METER
     Route: 065
     Dates: start: 20151027
  9. BLEOMYCIN [Suspect]
     Active Substance: BLEOMYCIN SULFATE
     Dosage: 10 MILLIGRAM/SQ. METER
     Route: 065
     Dates: start: 20160120
  10. CYCLOPHOSPHAMIDE [Suspect]
     Active Substance: CYCLOPHOSPHAMIDE
     Indication: Hodgkin^s disease
     Dosage: 750 MILLIGRAM/SQ. METER
     Route: 065
     Dates: start: 20160113
  11. DACARBAZINE [Suspect]
     Active Substance: DACARBAZINE
     Indication: Hodgkin^s disease
     Dosage: 375 MILLIGRAM/SQ. METER
     Dates: start: 20151027
  12. DIAZEPAM [Suspect]
     Active Substance: DIAZEPAM
     Indication: Pain in extremity
     Dosage: 10 MILLIGRAM
     Route: 065
     Dates: start: 20150608
  13. DIAZEPAM [Suspect]
     Active Substance: DIAZEPAM
     Indication: Back pain
  14. PIRITRAMIDE [Suspect]
     Active Substance: PIRITRAMIDE
     Indication: Back pain
     Dosage: 15 MILLIGRAM
     Route: 058
     Dates: start: 20150608
  15. PIRITRAMIDE [Suspect]
     Active Substance: PIRITRAMIDE
     Indication: Pain in extremity
  16. DOXORUBICIN [Suspect]
     Active Substance: DOXORUBICIN
     Indication: Hodgkin^s disease
     Dosage: 25 MILLIGRAM/SQ. METER
     Route: 065
     Dates: start: 20151027
  17. DOXORUBICIN [Suspect]
     Active Substance: DOXORUBICIN
     Dosage: 25 MILLIGRAM/SQ. METER
     Route: 065
     Dates: start: 20160113
  18. ETOPOSIDE [Suspect]
     Active Substance: ETOPOSIDE
     Indication: Hodgkin^s disease
     Dosage: 100 MILLIGRAM/SQ. METER
     Route: 065
     Dates: start: 20160113
  19. LENOGRASTIM [Suspect]
     Active Substance: LENOGRASTIM
     Indication: Neutropenia
     Dosage: UNK
     Route: 065
  20. LENOGRASTIM [Suspect]
     Active Substance: LENOGRASTIM
     Dosage: UNK
     Route: 065
  21. LENOGRASTIM [Suspect]
     Active Substance: LENOGRASTIM
     Dosage: UNK, QD
     Route: 065
     Dates: start: 20160120
  22. LENOGRASTIM [Suspect]
     Active Substance: LENOGRASTIM
     Dosage: UNK, QD
     Route: 065
     Dates: start: 20160203, end: 20160205
  23. NEULASTA [Suspect]
     Active Substance: PEGFILGRASTIM
     Indication: Neutropenia
     Dosage: UNK
     Route: 058
     Dates: start: 20151212, end: 20151212
  24. PREDNISOLONE [Suspect]
     Active Substance: PREDNISOLONE
     Indication: Hodgkin^s disease
     Dosage: UNK
     Route: 065
     Dates: start: 20160113, end: 20160126
  25. PROCARBAZINE [Suspect]
     Active Substance: PROCARBAZINE
     Indication: Hodgkin^s disease
     Dosage: 100 MILLIGRAM/SQ. METER
     Route: 065
     Dates: start: 20190113, end: 20190119
  26. VALSARTAN [Suspect]
     Active Substance: VALSARTAN
     Indication: Hypertension
     Dosage: 80 MILLIGRAM
     Route: 065
  27. VALSARTAN [Suspect]
     Active Substance: VALSARTAN
     Dosage: UNK, QD (EVERY 1 DAY)
     Route: 065
  28. VALSARTAN [Suspect]
     Active Substance: VALSARTAN
     Dosage: 80 MILLIGRAM
     Route: 065
     Dates: start: 20140707
  29. VALSARTAN [Suspect]
     Active Substance: VALSARTAN
     Dosage: UNK
     Route: 065
     Dates: start: 20140707
  30. VALSARTAN [Suspect]
     Active Substance: VALSARTAN
     Dosage: UNK
     Route: 065
  31. VALSARTAN [Suspect]
     Active Substance: VALSARTAN
     Dosage: UNK
     Route: 065
     Dates: start: 20141014
  32. VALSARTAN [Suspect]
     Active Substance: VALSARTAN
     Dosage: UNK
     Route: 065
     Dates: start: 20150102
  33. VALSARTAN [Suspect]
     Active Substance: VALSARTAN
     Dosage: UNK
     Route: 065
     Dates: start: 20150415
  34. VALSARTAN [Suspect]
     Active Substance: VALSARTAN
     Dosage: UNK
     Route: 065
     Dates: start: 20150611
  35. VALSARTAN [Suspect]
     Active Substance: VALSARTAN
     Dosage: UNK
     Route: 065
     Dates: start: 20160427
  36. VALSARTAN [Suspect]
     Active Substance: VALSARTAN
     Dosage: UNK
     Route: 065
     Dates: start: 20160804
  37. HYDROCHLOROTHIAZIDE\VALSARTAN [Suspect]
     Active Substance: HYDROCHLOROTHIAZIDE\VALSARTAN
     Indication: Hypertension
     Dosage: UNK, QD
     Route: 065
     Dates: end: 20170725
  38. HYDROCHLOROTHIAZIDE\VALSARTAN [Suspect]
     Active Substance: HYDROCHLOROTHIAZIDE\VALSARTAN
     Dosage: 1 DOSAGE FORM, QD
     Route: 065
  39. HYDROCHLOROTHIAZIDE\VALSARTAN [Suspect]
     Active Substance: HYDROCHLOROTHIAZIDE\VALSARTAN
     Dosage: UNK
     Route: 065
     Dates: start: 20140707
  40. HYDROCHLOROTHIAZIDE\VALSARTAN [Suspect]
     Active Substance: HYDROCHLOROTHIAZIDE\VALSARTAN
     Dosage: 1 DOSAGE FORM, QD
     Route: 065
  41. HYDROCHLOROTHIAZIDE\VALSARTAN [Suspect]
     Active Substance: HYDROCHLOROTHIAZIDE\VALSARTAN
     Dosage: UNK
     Route: 065
     Dates: start: 20141014
  42. HYDROCHLOROTHIAZIDE\VALSARTAN [Suspect]
     Active Substance: HYDROCHLOROTHIAZIDE\VALSARTAN
     Dosage: UNK
     Route: 065
     Dates: start: 20150102
  43. HYDROCHLOROTHIAZIDE\VALSARTAN [Suspect]
     Active Substance: HYDROCHLOROTHIAZIDE\VALSARTAN
     Dosage: UNK
     Route: 065
     Dates: start: 20150415
  44. HYDROCHLOROTHIAZIDE\VALSARTAN [Suspect]
     Active Substance: HYDROCHLOROTHIAZIDE\VALSARTAN
     Dosage: UNK
     Route: 065
     Dates: start: 20150611
  45. HYDROCHLOROTHIAZIDE\VALSARTAN [Suspect]
     Active Substance: HYDROCHLOROTHIAZIDE\VALSARTAN
     Dosage: UNK
     Route: 065
     Dates: start: 20160427
  46. HYDROCHLOROTHIAZIDE\VALSARTAN [Suspect]
     Active Substance: HYDROCHLOROTHIAZIDE\VALSARTAN
     Dosage: UNK
     Route: 065
     Dates: start: 20160804
  47. HYDROCHLOROTHIAZIDE\VALSARTAN [Suspect]
     Active Substance: HYDROCHLOROTHIAZIDE\VALSARTAN
     Dosage: UNK
     Route: 065
     Dates: start: 20170112
  48. VINBLASTINE [Suspect]
     Active Substance: VINBLASTINE
     Indication: Hodgkin^s disease
     Dosage: 6 MILLIGRAM/SQ. METER
     Route: 065
     Dates: start: 20151027
  49. VINCRISTINE [Suspect]
     Active Substance: VINCRISTINE
     Indication: Hodgkin^s disease
     Dosage: 2 MILLIGRAM
     Route: 065
     Dates: start: 20160120
  50. BACLOFEN [Concomitant]
     Active Substance: BACLOFEN
     Indication: Product used for unknown indication
     Dosage: UNK
     Route: 065
  51. BACLOFEN [Concomitant]
     Active Substance: BACLOFEN
     Dosage: 80 MICROGRAM, QD
     Route: 065
  52. BACLOFEN [Concomitant]
     Active Substance: BACLOFEN
     Dosage: 50 MICROGRAM, QD
     Route: 065
  53. BACLOFEN [Concomitant]
     Active Substance: BACLOFEN
     Dosage: UNK
     Dates: start: 20170704, end: 20170712
  54. BACLOFEN [Concomitant]
     Active Substance: BACLOFEN
     Dosage: 25 MICROGRAM
     Route: 065
     Dates: start: 20180102
  55. BACLOFEN [Concomitant]
     Active Substance: BACLOFEN
     Dosage: UNK
     Route: 065
     Dates: start: 20180228
  56. CITALOPRAM [Concomitant]
     Active Substance: CITALOPRAM HYDROBROMIDE
     Indication: Product used for unknown indication
     Dosage: UNK
     Route: 065
  57. ENOXAPARIN SODIUM [Concomitant]
     Active Substance: ENOXAPARIN SODIUM
     Indication: Thrombosis prophylaxis
     Dosage: 40 MILLIGRAM, QD
     Route: 058
  58. CLONIDINE [Concomitant]
     Active Substance: CLONIDINE
     Indication: Hypertension
     Dosage: 1 MILLIGRAM, QD
     Route: 065
  59. CLONIDINE [Concomitant]
     Active Substance: CLONIDINE
     Dosage: UNK, QD
     Route: 065
  60. CLONIDINE [Concomitant]
     Active Substance: CLONIDINE
     Dosage: 0.3 MICROGRAM, QD
     Route: 065
  61. SULFAMETHOXAZOLE\TRIMETHOPRIM [Concomitant]
     Active Substance: SULFAMETHOXAZOLE\TRIMETHOPRIM
     Indication: Pneumonia
     Dosage: 2 DOSAGE FORM, QD
     Route: 065
  62. SULFAMETHOXAZOLE\TRIMETHOPRIM [Concomitant]
     Active Substance: SULFAMETHOXAZOLE\TRIMETHOPRIM
     Indication: Pneumonia
     Dosage: UNK
     Route: 065
  63. DIAZEPAM [Concomitant]
     Active Substance: DIAZEPAM
     Indication: Product used for unknown indication
     Dosage: UNK, QD
     Route: 065
  64. LEVOTHYROXINE [Concomitant]
     Active Substance: LEVOTHYROXINE
     Indication: Product used for unknown indication
     Dosage: UNK
     Route: 065
  65. LYRICA [Concomitant]
     Active Substance: PREGABALIN
     Indication: Product used for unknown indication
     Dosage: UNK
     Route: 065
  66. LYRICA [Concomitant]
     Active Substance: PREGABALIN
     Dosage: UNK
     Route: 065
  67. LYRICA [Concomitant]
     Active Substance: PREGABALIN
     Dosage: UNK
     Route: 065
  68. MORPHINE [Concomitant]
     Active Substance: MORPHINE
     Indication: Pain
     Dosage: UNK
     Route: 065
  69. MOTILIUM [Concomitant]
     Active Substance: DOMPERIDONE
     Indication: Product used for unknown indication
     Dosage: 1 DOSAGE FORM
     Route: 065
  70. MOTILIUM [Concomitant]
     Active Substance: DOMPERIDONE
     Dosage: 10 MILLIGRAM
     Route: 048
  71. MOVICOL [Concomitant]
     Active Substance: POLYETHYLENE GLYCOL 3350\POTASSIUM CHLORIDE\SODIUM BICARBONATE\SODIUM CHLORIDE
     Indication: Product used for unknown indication
     Dosage: 1 DOSAGE FORM
     Route: 065
  72. HYDROMORPHONE [Concomitant]
     Active Substance: HYDROMORPHONE
     Indication: Product used for unknown indication
     Dosage: 16 MILLIGRAM, QD
     Route: 065
  73. HYDROMORPHONE [Concomitant]
     Active Substance: HYDROMORPHONE
     Dosage: UNK
     Route: 065
  74. PANTOZOL [Concomitant]
     Active Substance: PANTOPRAZOLE SODIUM
     Indication: Product used for unknown indication
     Dosage: UNK
     Route: 065
  75. PANTOZOL [Concomitant]
     Active Substance: PANTOPRAZOLE SODIUM
     Dosage: 40 MILLIGRAM, QD
     Route: 065
  76. CLORAZEPATE DIPOTASSIUM [Concomitant]
     Active Substance: CLORAZEPATE DIPOTASSIUM
     Indication: Product used for unknown indication
     Dosage: 10 MILLIGRAM, QD
     Route: 065
  77. CLORAZEPATE DIPOTASSIUM [Concomitant]
     Active Substance: CLORAZEPATE DIPOTASSIUM
     Dosage: 15 MILLIGRAM, QD
     Route: 065
  78. CLORAZEPATE DIPOTASSIUM [Concomitant]
     Active Substance: CLORAZEPATE DIPOTASSIUM
     Dosage: 20 MILLIGRAM, QD
     Route: 065
  79. HYDROCHLOROTHIAZIDE\VALSARTAN [Concomitant]
     Active Substance: HYDROCHLOROTHIAZIDE\VALSARTAN
     Indication: Hypertension
     Dosage: UNK
     Route: 065
  80. HYDROCHLOROTHIAZIDE\VALSARTAN [Concomitant]
     Active Substance: HYDROCHLOROTHIAZIDE\VALSARTAN
     Dosage: UNK
     Route: 065
     Dates: start: 20170411
  81. HYDROCHLOROTHIAZIDE\VALSARTAN [Concomitant]
     Active Substance: HYDROCHLOROTHIAZIDE\VALSARTAN
     Dosage: UNK
     Route: 065
     Dates: start: 20170725
  82. VALSARTAN [Concomitant]
     Active Substance: VALSARTAN
     Indication: Hypertension
     Dosage: UNK
     Route: 065
  83. VALSARTAN [Concomitant]
     Active Substance: VALSARTAN
     Dosage: UNK
     Route: 065
     Dates: start: 20170725
  84. CHOLECALCIFEROL [Concomitant]
     Active Substance: CHOLECALCIFEROL
     Indication: Product used for unknown indication
     Dosage: 100 MILLIGRAM
     Route: 048

REACTIONS (73)
  - Basal ganglion degeneration [Unknown]
  - Candida infection [Unknown]
  - Pulmonary congestion [Unknown]
  - Bone pain [Unknown]
  - Dysphagia [Unknown]
  - Klebsiella infection [Unknown]
  - Pain in extremity [Unknown]
  - Back pain [Recovering/Resolving]
  - Spinal pain [Unknown]
  - General physical health deterioration [Unknown]
  - Splenomegaly [Unknown]
  - Urinary tract infection [Unknown]
  - Red blood cell sedimentation rate increased [Unknown]
  - Hodgkin^s disease [Unknown]
  - Lymphadenopathy [Recovering/Resolving]
  - Neutropenia [Recovering/Resolving]
  - Pneumonia [Unknown]
  - Viral infection [Unknown]
  - Pain [Recovering/Resolving]
  - Cough [Unknown]
  - Dyspnoea [Recovering/Resolving]
  - Nausea [Recovering/Resolving]
  - Vomiting [Recovering/Resolving]
  - Hyperpyrexia [Unknown]
  - Headache [Unknown]
  - Pyrexia [Recovered/Resolved]
  - Tissue infiltration [Unknown]
  - Hypothyroidism [Unknown]
  - Drug abuse [Unknown]
  - Sepsis [Unknown]
  - Respiratory failure [Unknown]
  - Monoplegia [Unknown]
  - Inflammation [Recovering/Resolving]
  - Fatigue [Unknown]
  - Haematoma [Unknown]
  - Hypokinesia [Not Recovered/Not Resolved]
  - Somnolence [Recovering/Resolving]
  - Muscle spasticity [Unknown]
  - Device malfunction [Unknown]
  - Psychogenic seizure [Unknown]
  - Loss of consciousness [Unknown]
  - Fall [Unknown]
  - Tenderness [Unknown]
  - Fatigue [Unknown]
  - Tremor [Unknown]
  - Speech disorder [Recovering/Resolving]
  - Neurological decompensation [Recovering/Resolving]
  - Pyrexia [Recovered/Resolved]
  - Intervertebral disc disorder [Unknown]
  - Neoplasm malignant [Unknown]
  - Anaphylactic reaction [Unknown]
  - Renal cyst [Unknown]
  - Tachycardia [Unknown]
  - Hyperhidrosis [Unknown]
  - Inguinal hernia [Unknown]
  - Hepatic steatosis [Unknown]
  - Dizziness [Unknown]
  - Abdominal tenderness [Unknown]
  - Uterine enlargement [Unknown]
  - Obesity [Unknown]
  - Sleep disorder [Unknown]
  - Dysaesthesia [Recovering/Resolving]
  - Hypoaesthesia [Recovering/Resolving]
  - Anaesthesia [Recovering/Resolving]
  - Fall [Recovered/Resolved]
  - Hypochromic anaemia [Unknown]
  - Hyperventilation [Unknown]
  - Drug hypersensitivity [Unknown]
  - Arthralgia [Unknown]
  - Myalgia [Unknown]
  - Sleep apnoea syndrome [Unknown]
  - Lung disorder [Unknown]
  - Drug intolerance [Unknown]

NARRATIVE: CASE EVENT DATE: 20140101
